FAERS Safety Report 7499434-0 (Version None)
Quarter: 2011Q2

REPORT INFORMATION
  Report Type: 
  Country: None (occurrence: None)
  Receive Date: 20110524
  Receipt Date: 20110511
  Transmission Date: 20111010
  Serious: Yes (Hospitalization, Disabling, Other)
  Sender: FDA-Public Use
  Company Number: PHHY2011US39033

PATIENT
  Age: 42 Year
  Sex: Female
  Weight: 84 kg

DRUGS (18)
  1. DILANTIN [Concomitant]
     Dosage: 100 MG, BID
     Route: 048
  2. AMANTADINE HCL [Concomitant]
     Dosage: 100 MG, DAILY
     Route: 048
  3. FLUOXETINE [Concomitant]
     Dosage: 40 MG, DAILY
     Route: 048
  4. HEPARIN [Concomitant]
     Indication: DEEP VEIN THROMBOSIS
     Dosage: UNK UKN, UNK
     Route: 042
  5. GILENYA [Suspect]
     Dosage: 0.5 MG, QD
     Route: 048
     Dates: start: 20110214, end: 20110415
  6. DILAUDID [Concomitant]
     Dosage: UNK UKN, UNK
  7. GILENYA [Suspect]
     Dosage: 0.5 MG, QD
     Route: 048
     Dates: start: 20110425
  8. POTASSIUM CHLORIDE [Concomitant]
     Dosage: 10 MEQ, 4 DOSES
     Route: 042
  9. LORTAB [Concomitant]
     Dosage: 10/500, UKN, QID
  10. DILANTIN [Concomitant]
     Dosage: 200 MG, BID
     Route: 048
  11. COUMADIN [Concomitant]
     Dosage: 7.5 MG, UNK
     Route: 048
  12. BACLOFEN [Concomitant]
     Dosage: 30 MG, QHS
  13. LYRICA [Concomitant]
     Dosage: 100 MG, QHS
  14. LOPRESSOR [Concomitant]
     Dosage: 50 MG, DAILY
  15. METOPROLOL [Concomitant]
     Dosage: 25 MG, BID
     Route: 048
  16. PHENERGAN HCL [Concomitant]
     Dosage: UNK UKN, UNK
  17. DILANTIN [Concomitant]
     Dosage: 300 MG, QD
  18. PROTONIX [Concomitant]
     Dosage: 40 MG, DAILY
     Route: 048

REACTIONS (30)
  - PYREXIA [None]
  - HYPOPHAGIA [None]
  - PAIN [None]
  - MUSCULAR WEAKNESS [None]
  - PARAPARESIS [None]
  - ABDOMINAL DISCOMFORT [None]
  - SOMNOLENCE [None]
  - GASTROENTERITIS VIRAL [None]
  - ABDOMINAL PAIN UPPER [None]
  - DIPLOPIA [None]
  - BLOOD AMYLASE INCREASED [None]
  - UHTHOFF'S PHENOMENON [None]
  - BACK PAIN [None]
  - CONVULSION [None]
  - VOMITING [None]
  - DIARRHOEA [None]
  - SENSORY LOSS [None]
  - CELLULITIS [None]
  - TREMOR [None]
  - GAIT DISTURBANCE [None]
  - PHOTOPHOBIA [None]
  - ANXIETY [None]
  - OEDEMA PERIPHERAL [None]
  - GRAND MAL CONVULSION [None]
  - LIPASE INCREASED [None]
  - ASTHENIA [None]
  - MIGRAINE [None]
  - NAUSEA [None]
  - FATIGUE [None]
  - HEART RATE INCREASED [None]
